FAERS Safety Report 23287492 (Version 1)
Quarter: 2023Q4

REPORT INFORMATION
  Report Type: Spontaneous
  Country: IN (occurrence: IN)
  Receive Date: 20231212
  Receipt Date: 20231212
  Transmission Date: 20240110
  Serious: Yes (Hospitalization)
  Sender: FDA-Public Use
  Company Number: IN-MYLANLABS-2023M1128838

PATIENT
  Age: 48 Year
  Sex: Female

DRUGS (1)
  1. METHOTREXATE [Suspect]
     Active Substance: METHOTREXATE
     Indication: Product used for unknown indication
     Dosage: 15 MILLIGRAM, QD (DAILY)
     Route: 065

REACTIONS (6)
  - Acute kidney injury [Unknown]
  - Pancytopenia [Unknown]
  - Dysphagia [Unknown]
  - Mucocutaneous rash [Unknown]
  - Toxicity to various agents [Unknown]
  - Accidental overdose [Unknown]
